FAERS Safety Report 8130182-X (Version None)
Quarter: 2012Q1

REPORT INFORMATION
  Report Type: 
  Country: None (occurrence: None)
  Receive Date: 20120210
  Receipt Date: 20120131
  Transmission Date: 20120608
  Serious: Yes (Other)
  Sender: FDA-Public Use
  Company Number: CA-ABBOTT-12P-028-0898241-00

PATIENT
  Sex: Female

DRUGS (2)
  1. CRESTOR [Suspect]
     Indication: PRODUCT USED FOR UNKNOWN INDICATION
  2. HUMIRA [Suspect]
     Indication: RHEUMATOID ARTHRITIS
     Route: 058
     Dates: start: 20040622

REACTIONS (9)
  - JOINT STIFFNESS [None]
  - DYSLIPIDAEMIA [None]
  - ARTHROPATHY [None]
  - LIGAMENT OPERATION [None]
  - RHEUMATOID ARTHRITIS [None]
  - TENDON DISORDER [None]
  - NODULE [None]
  - JOINT ARTHROPLASTY [None]
  - BONE EROSION [None]
